FAERS Safety Report 19862311 (Version 1)
Quarter: 2021Q3

REPORT INFORMATION
  Report Type: Report from Study
  Country: AU (occurrence: AU)
  Receive Date: 20210920
  Receipt Date: 20210920
  Transmission Date: 20211014
  Serious: Yes (Other)
  Sender: FDA-Public Use
  Company Number: AU-BEH-2021136065

PATIENT
  Age: 37 Year
  Sex: Female
  Weight: 75 kg

DRUGS (5)
  1. PRAZOSIN. [Concomitant]
     Active Substance: PRAZOSIN
     Dosage: 2 MILLIGRAM
  2. HYDRALLAZINE [Concomitant]
     Dosage: 50 MILLIGRAM
  3. LERCANIDIPINE [Concomitant]
     Active Substance: LERCANIDIPINE
  4. METOPROLOL. [Concomitant]
     Active Substance: METOPROLOL
     Dosage: 190 MILLIGRAM
  5. HIZENTRA [Suspect]
     Active Substance: HUMAN IMMUNOGLOBULIN G
     Indication: SECONDARY IMMUNODEFICIENCY
     Dosage: 8 GRAM (40 ML), QW
     Route: 058
     Dates: end: 202102

REACTIONS (1)
  - Kidney transplant rejection [Unknown]
